FAERS Safety Report 6701185-4 (Version None)
Quarter: 2010Q2

REPORT INFORMATION
  Report Type: 
  Country: None (occurrence: None)
  Receive Date: 20100428
  Receipt Date: 20100428
  Transmission Date: 20101027
  Serious: No
  Sender: FDA-Public Use
  Company Number: None

PATIENT

DRUGS (1)
  1. ULTRATAG [Suspect]
     Dosage: IV
     Route: 042
     Dates: start: 20100401, end: 20100423

REACTIONS (1)
  - PRODUCT PACKAGING ISSUE [None]
